FAERS Safety Report 5576074-1 (Version None)
Quarter: 2007Q4

REPORT INFORMATION
  Report Type: 
  Country: None (occurrence: None)
  Receive Date: 20071221
  Receipt Date: 20071210
  Transmission Date: 20080405
  Serious: Yes (Other)
  Sender: FDA-Public Use
  Company Number: 2007AL005347

PATIENT
  Age: 60 Year
  Sex: Male
  Weight: 110 kg

DRUGS (10)
  1. GABAPENTIN [Suspect]
     Indication: NEURALGIA
     Dosage: 300 MG; QID; PO
     Route: 048
     Dates: start: 20040415, end: 20070801
  2. METFORMIN HCL [Concomitant]
  3. GLIMEPIRIDE [Concomitant]
  4. PERINDOPRIL TERTBUTYLAMINE [Concomitant]
  5. DOXAZOSIN MESYLATE [Concomitant]
  6. FUROSEMIDE [Concomitant]
  7. AMLODIPINE [Concomitant]
  8. ROSUVASTATIN [Concomitant]
  9. SILDENAFIL CITRATE [Concomitant]
  10. QUININE SULFATE [Concomitant]

REACTIONS (1)
  - DIABETES MELLITUS INADEQUATE CONTROL [None]
